FAERS Safety Report 4434036-1 (Version None)
Quarter: 2004Q3

REPORT INFORMATION
  Report Type: 
  Country: None (occurrence: None)
  Receive Date: 20040825
  Receipt Date: 20040811
  Transmission Date: 20050211
  Serious: Yes (Hospitalization, Disabling)
  Sender: FDA-Public Use
  Company Number: DE_040714044

PATIENT
  Age: 63 Year
  Sex: Male

DRUGS (4)
  1. FORTEO [Suspect]
     Indication: OSTEOPOROSIS
     Dosage: 20 UG/1 DAY
     Dates: start: 20040301, end: 20040501
  2. CALCIUM [Concomitant]
  3. AZATHIOPRINE [Concomitant]
  4. CORTISONE [Concomitant]

REACTIONS (7)
  - CONDITION AGGRAVATED [None]
  - DEEP VEIN THROMBOSIS [None]
  - IMMOBILE [None]
  - IMPAIRED WORK ABILITY [None]
  - LUNG TRANSPLANT [None]
  - PHARMACEUTICAL PRODUCT COMPLAINT [None]
  - PULMONARY FIBROSIS [None]
